FAERS Safety Report 26123035 (Version 1)
Quarter: 2025Q4

REPORT INFORMATION
  Report Type: Spontaneous
  Country: EU (occurrence: EU)
  Receive Date: 20251204
  Receipt Date: 20251204
  Transmission Date: 20260117
  Serious: Yes (Other)
  Sender: PFIZER
  Company Number: EU-PFIZER INC-PV202500141072

PATIENT
  Sex: Female
  Weight: 67 kg

DRUGS (1)
  1. INFLIXIMAB [Suspect]
     Active Substance: INFLIXIMAB
     Dosage: 400 MG, (INFUSION STARTED AT 6 WEEKS ON JUNE 12)
     Route: 042

REACTIONS (5)
  - Diarrhoea haemorrhagic [Recovering/Resolving]
  - Asthenia [Recovering/Resolving]
  - Erythema nodosum [Recovering/Resolving]
  - Myalgia [Recovering/Resolving]
  - Abdominal pain [Recovering/Resolving]
